FAERS Safety Report 17392679 (Version 1)
Quarter: 2020Q1

REPORT INFORMATION
  Report Type: Spontaneous
  Country: CA (occurrence: CA)
  Receive Date: 20200207
  Receipt Date: 20200207
  Transmission Date: 20200409
  Serious: Yes (Life-Threatening)
  Sender: FDA-Public Use
  Company Number: CA-AUROBINDO-AUR-APL-2020-005459

PATIENT
  Age: 46 Year
  Sex: Male

DRUGS (9)
  1. SYMBICORT [Concomitant]
     Active Substance: BUDESONIDE\FORMOTEROL FUMARATE DIHYDRATE
     Indication: ASTHMA
     Dosage: 2 DOSAGE FORM, TWO TIMES A DAY
  2. VENTOLIN [Concomitant]
     Active Substance: ALBUTEROL SULFATE
     Indication: ASTHMA
     Dosage: 2 DOSAGE FORM
  3. METFORMIN [Suspect]
     Active Substance: METFORMIN HYDROCHLORIDE
     Indication: DIABETES MELLITUS
     Dosage: 1 DOSAGE FORM, TWO TIMES A DAY
     Route: 048
  4. PULMICORT TURBUHALER [Concomitant]
     Active Substance: BUDESONIDE
     Indication: HYPERSENSITIVITY
  5. OMALIZUMAB. [Suspect]
     Active Substance: OMALIZUMAB
     Indication: ASTHMA
     Dosage: 375 MILLIGRAM, EVERY 2 WEEKS
     Route: 058
  6. SODIUM CHLORIDE. [Concomitant]
     Active Substance: SODIUM CHLORIDE
     Indication: SINUS DISORDER
     Dosage: 1 DOSAGE FORM, ONCE A DAY
     Route: 045
  7. OMALIZUMAB. [Suspect]
     Active Substance: OMALIZUMAB
     Dosage: 375 MILLIGRAM, EVERY 2 WEEKS
     Route: 058
  8. PULMICORT TURBUHALER [Concomitant]
     Active Substance: BUDESONIDE
     Indication: SINUS DISORDER
     Dosage: 1 DOSAGE FORM, ONCE A DAY
     Route: 045
  9. SODIUM CHLORIDE. [Concomitant]
     Active Substance: SODIUM CHLORIDE
     Indication: HYPERSENSITIVITY

REACTIONS (5)
  - Fear of death [Recovered/Resolved]
  - Initial insomnia [Recovered/Resolved]
  - Lower respiratory tract congestion [Recovered/Resolved]
  - Urticaria [Recovered/Resolved]
  - Anxiety [Recovered/Resolved]
